FAERS Safety Report 8223771-5 (Version None)
Quarter: 2012Q1

REPORT INFORMATION
  Report Type: 
  Country: None (occurrence: None)
  Receive Date: 20120321
  Receipt Date: 20120312
  Transmission Date: 20120608
  Serious: Yes (Hospitalization)
  Sender: FDA-Public Use
  Company Number: US-BAYER-2011-118244

PATIENT
  Age: 28 Year
  Sex: Female
  Weight: 75 kg

DRUGS (3)
  1. ANTIBIOTICS [Concomitant]
  2. YASMIN [Suspect]
     Dosage: UNK
     Dates: start: 20010501, end: 20080101
  3. NSAID'S [Concomitant]
     Indication: PAIN

REACTIONS (4)
  - GALLBLADDER DISORDER [None]
  - CHOLELITHIASIS [None]
  - PAIN [None]
  - INJURY [None]
